FAERS Safety Report 25183502 (Version 1)
Quarter: 2025Q2

REPORT INFORMATION
  Report Type: Spontaneous
  Country: US (occurrence: None)
  Receive Date: 20250409
  Receipt Date: 20250409
  Transmission Date: 20250716
  Serious: Yes (Other)
  Sender: FDA-CTU
  Company Number: None

PATIENT
  Sex: Male

DRUGS (11)
  1. TEZSPIRE [Suspect]
     Active Substance: TEZEPELUMAB-EKKO
     Indication: Asthma
     Dosage: INJECT 1.91 ML (210 MG) UNDER THE SKIN (SUBCUTANEOUS INJECTION) ONE TIME EACH MONTH?
     Route: 058
     Dates: start: 20250107
  2. ALBUTEROL AER HFA [Concomitant]
  3. AZELASTINE SPR 0.1% [Concomitant]
  4. EZETIMIBE [Concomitant]
     Active Substance: EZETIMIBE
  5. FLONASE SPR 0.05% [Concomitant]
  6. IRBESARTAN [Concomitant]
     Active Substance: IRBESARTAN
  7. METFORMIN [Concomitant]
     Active Substance: METFORMIN HYDROCHLORIDE
  8. MONTELUKAST SODIUM [Concomitant]
     Active Substance: MONTELUKAST SODIUM
  9. NUCALA [Concomitant]
     Active Substance: MEPOLIZUMAB
  10. OMEPRAZOLE [Concomitant]
     Active Substance: OMEPRAZOLE
  11. OZEMPIC [Concomitant]
     Active Substance: SEMAGLUTIDE

REACTIONS (2)
  - Back pain [None]
  - Supraventricular tachycardia [None]
